FAERS Safety Report 24366916 (Version 1)
Quarter: 2024Q3

REPORT INFORMATION
  Report Type: Spontaneous
  Country: US (occurrence: US)
  Receive Date: 20240926
  Receipt Date: 20240926
  Transmission Date: 20241017
  Serious: Yes (Other)
  Sender: REGENERON
  Company Number: US-REGENERON PHARMACEUTICALS, INC.-2024-128950

PATIENT
  Age: 89 Year
  Sex: Female

DRUGS (3)
  1. EYLEA HD [Suspect]
     Active Substance: AFLIBERCEPT
     Indication: Neovascular age-related macular degeneration
     Dosage: 8 MG, FORMULATION: HD VIAL
     Route: 031
     Dates: start: 20240202, end: 20240202
  2. EYLEA HD [Suspect]
     Active Substance: AFLIBERCEPT
     Dosage: 8 MG, FORMULATION: HD VIAL
     Route: 031
     Dates: start: 20240510, end: 20240510
  3. EYLEA HD [Suspect]
     Active Substance: AFLIBERCEPT
     Dosage: 8 MG, FORMULATION: HD VIAL
     Route: 031
     Dates: start: 20240810, end: 20240810

REACTIONS (1)
  - Subretinal fluid [Unknown]
